FAERS Safety Report 5100845-9 (Version None)
Quarter: 2006Q3

REPORT INFORMATION
  Report Type: 
  Country: None (occurrence: None)
  Receive Date: 20060911
  Receipt Date: 20060831
  Transmission Date: 20061208
  Serious: Yes (Hospitalization)
  Sender: FDA-Public Use
  Company Number: RO-JNJFOC-20060900354

PATIENT
  Sex: Female
  Weight: 75 kg

DRUGS (15)
  1. REMICADE [Suspect]
     Route: 042
  2. REMICADE [Suspect]
     Indication: RHEUMATOID ARTHRITIS
     Route: 042
  3. METHOTREXATUM [Suspect]
     Indication: RHEUMATOID ARTHRITIS
     Route: 030
  4. SIOFOR [Concomitant]
     Route: 065
  5. METFORMIN HCL [Concomitant]
     Route: 065
  6. TERTENSIF [Concomitant]
     Indication: HYPERTENSION
     Route: 048
  7. DETRALEX [Concomitant]
     Route: 065
  8. TIMOLOL MALEATE [Concomitant]
     Route: 065
  9. XALATAN [Concomitant]
     Route: 065
  10. ENAP [Concomitant]
     Route: 065
  11. NITROPECTOR [Concomitant]
     Route: 065
  12. SIMVASTATIN [Concomitant]
     Indication: HYPERCHOLESTEROLAEMIA
     Route: 048
  13. DICLOFENACUM [Concomitant]
     Indication: RHEUMATOID ARTHRITIS
     Route: 048
  14. ENALAPRIL [Concomitant]
     Indication: HYPERTENSION
     Route: 048
  15. GLIBENCLAMIDUM [Concomitant]
     Indication: DIABETES MELLITUS
     Route: 065

REACTIONS (3)
  - DISSEMINATED TUBERCULOSIS [None]
  - DRUG INTOLERANCE [None]
  - PULMONARY CALCIFICATION [None]
